FAERS Safety Report 10884427 (Version 4)
Quarter: 2015Q2

REPORT INFORMATION
  Report Type: Spontaneous
  Country: US (occurrence: US)
  Receive Date: 20150304
  Receipt Date: 20150524
  Transmission Date: 20150821
  Serious: Yes (Other)
  Sender: FDA-Public Use
  Company Number: US-JNJFOC-20150214479

PATIENT
  Sex: Female

DRUGS (3)
  1. FENTANYL. [Suspect]
     Active Substance: FENTANYL
     Indication: BACK PAIN
     Route: 062
  2. PERCOCET [Concomitant]
     Active Substance: ACETAMINOPHEN\OXYCODONE HYDROCHLORIDE
     Indication: PAIN
     Route: 065
  3. DURAGESIC [Suspect]
     Active Substance: FENTANYL
     Indication: BACK PAIN
     Route: 062

REACTIONS (10)
  - Finger deformity [Not Recovered/Not Resolved]
  - Product adhesion issue [Unknown]
  - Dry skin [Not Recovered/Not Resolved]
  - Malaise [Not Recovered/Not Resolved]
  - Pneumonia [Not Recovered/Not Resolved]
  - Product quality issue [Unknown]
  - Application site erosion [Not Recovered/Not Resolved]
  - Anxiety [Not Recovered/Not Resolved]
  - Lung disorder [Not Recovered/Not Resolved]
  - Application site rash [Not Recovered/Not Resolved]
